FAERS Safety Report 4991503-X (Version None)
Quarter: 2006Q2

REPORT INFORMATION
  Report Type: 
  Country: None (occurrence: None)
  Receive Date: 20060502
  Receipt Date: 20060418
  Transmission Date: 20061013
  Serious: Yes (Death)
  Sender: FDA-Public Use
  Company Number: GXKR2006GB02210

PATIENT
  Age: 52 Year
  Sex: Male

DRUGS (2)
  1. DIAZEPAM [Suspect]
     Dosage: 16 TABLET, ORAL
     Route: 048
     Dates: start: 20050317
  2. CIPRAMIL /NET/ (CITALOPRAM HYDROCHLORIDE) [Suspect]
     Indication: DEPRESSION
     Dosage: 40 MG, QD, ORAL
     Route: 048
     Dates: start: 20050201, end: 20050317

REACTIONS (3)
  - COMPLETED SUICIDE [None]
  - INJURY ASPHYXIATION [None]
  - OVERDOSE [None]
